FAERS Safety Report 6542435-7 (Version None)
Quarter: 2010Q1

REPORT INFORMATION
  Report Type: 
  Country: None (occurrence: None)
  Receive Date: 20100114
  Receipt Date: 20100114
  Transmission Date: 20100710
  Serious: Yes (Other)
  Sender: FDA-Public Use
  Company Number: None

PATIENT
  Sex: Female
  Weight: 106.1417 kg

DRUGS (1)
  1. WELLBUTRIN [Suspect]
     Indication: DEPRESSION
     Dosage: 300MG EVERY DAY

REACTIONS (3)
  - DRUG EFFECT DECREASED [None]
  - DRUG EFFECT DELAYED [None]
  - PRODUCT SUBSTITUTION ISSUE [None]
